FAERS Safety Report 4717808-5 (Version None)
Quarter: 2005Q3

REPORT INFORMATION
  Report Type: 
  Country: None (occurrence: None)
  Receive Date: 20050715
  Receipt Date: 20050225
  Transmission Date: 20060218
  Serious: Yes (Death, Hospitalization)
  Sender: FDA-Public Use
  Company Number: 2004-00959

PATIENT
  Age: 66 Year
  Sex: Male
  Weight: 94.3 kg

DRUGS (4)
  1. INTEGRILIN [Suspect]
     Indication: CORONARY ANGIOPLASTY
     Dosage: IV BOLUS
     Route: 040
     Dates: start: 20041117, end: 20041117
  2. ASPIRIN [Concomitant]
  3. HEPARIN [Concomitant]
  4. PLAVIX [Concomitant]

REACTIONS (1)
  - HAEMORRHAGE INTRACRANIAL [None]
